FAERS Safety Report 10429914 (Version 1)
Quarter: 2014Q3

REPORT INFORMATION
  Report Type: Spontaneous
  Country: DE (occurrence: DE)
  Receive Date: 20140904
  Receipt Date: 20140904
  Transmission Date: 20150326
  Serious: Yes (Congenital Anomaly, Other)
  Sender: FDA-Public Use
  Company Number: DE-PFIZER INC-2014240864

PATIENT
  Sex: Male
  Weight: .89 kg

DRUGS (8)
  1. FAMPYRA RETARD [Suspect]
     Active Substance: DALFAMPRIDINE
     Indication: MULTIPLE SCLEROSIS
     Dosage: 10 MG, DAILY
     Route: 064
     Dates: start: 20121118, end: 20121210
  2. GABAPENTIN. [Suspect]
     Active Substance: GABAPENTIN
     Indication: MULTIPLE SCLEROSIS
     Dosage: 3200 MG, DAILY
     Route: 064
     Dates: start: 20121118
  3. CLEXANE [Concomitant]
     Active Substance: ENOXAPARIN SODIUM
     Indication: THROMBOSIS
     Dosage: 40 MG, DAILY
     Route: 064
     Dates: start: 20121118, end: 20130628
  4. ASPIRIN. [Concomitant]
     Active Substance: ASPIRIN
     Indication: THROMBOSIS PROPHYLAXIS
     Dosage: 100 MG, DAILY
     Route: 064
     Dates: start: 20130412, end: 20130628
  5. REMERGIL [Suspect]
     Active Substance: MIRTAZAPINE
     Indication: DEPRESSION
     Dosage: 30 MG, DAILY
     Route: 064
     Dates: start: 20130226, end: 20130628
  6. GABAPENTIN. [Suspect]
     Active Substance: GABAPENTIN
     Dosage: FROM GW 14+2: 1200 MG, DAILY
     Route: 064
  7. TYSABRI [Suspect]
     Active Substance: NATALIZUMAB
     Indication: MULTIPLE SCLEROSIS
     Dosage: EVERY 4 WEEKS
     Route: 064
     Dates: start: 20121118, end: 20121206
  8. ENOXAPARIN [Concomitant]
     Active Substance: ENOXAPARIN
     Dosage: 40 MG, DAILY
     Route: 064

REACTIONS (9)
  - Maternal exposure during pregnancy [Not Recovered/Not Resolved]
  - Feeding disorder neonatal [Recovered/Resolved]
  - Hypospadias [Not Recovered/Not Resolved]
  - Osteopenia [Unknown]
  - Neonatal respiratory distress syndrome [Recovered/Resolved]
  - Premature baby [Unknown]
  - Small for dates baby [Recovering/Resolving]
  - Atrial septal defect [Unknown]
  - Retinopathy [Unknown]

NARRATIVE: CASE EVENT DATE: 20130628
